FAERS Safety Report 4448570-1 (Version None)
Quarter: 2004Q3

REPORT INFORMATION
  Report Type: 
  Country: None (occurrence: None)
  Receive Date: 20040909
  Receipt Date: 20040819
  Transmission Date: 20050211
  Serious: Yes (Death, Other)
  Sender: FDA-Public Use
  Company Number: EWC040740035

PATIENT
  Age: 67 Year
  Sex: Female
  Weight: 87 kg

DRUGS (4)
  1. XIGRIS [Suspect]
     Indication: SEPSIS
     Dosage: 24 MG
     Dates: start: 20040710, end: 20040713
  2. LASIX [Concomitant]
  3. DOBUTAMINE [Concomitant]
  4. ADRENALINE [Concomitant]

REACTIONS (10)
  - BLEEDING TIME PROLONGED [None]
  - GLASGOW COMA SCALE ABNORMAL [None]
  - HAEMORRHAGIC CEREBRAL INFARCTION [None]
  - HYPOTENSION [None]
  - INTERNATIONAL NORMALISED RATIO INCREASED [None]
  - ISCHAEMIC CEREBRAL INFARCTION [None]
  - MULTI-ORGAN FAILURE [None]
  - PROTHROMBIN TIME PROLONGED [None]
  - PUPIL FIXED [None]
  - VASCULAR OCCLUSION [None]
